FAERS Safety Report 8383567-0 (Version None)
Quarter: 2012Q2

REPORT INFORMATION
  Report Type: 
  Country: None (occurrence: None)
  Receive Date: 20120524
  Receipt Date: 20120517
  Transmission Date: 20120825
  Serious: No
  Sender: FDA-Public Use
  Company Number: US-BAYER-2012-049800

PATIENT
  Age: 73 Year
  Sex: Male
  Weight: 95 kg

DRUGS (9)
  1. KLOR-CON [Concomitant]
  2. HYDROCHLOROTHIAZIDE [Concomitant]
  3. NAPROXEN SODIUM [Suspect]
     Dosage: 1 U, TID
     Route: 048
     Dates: start: 20120507
  4. TRAMADOL HYDROCHLORIDE [Concomitant]
  5. METFORMIN HCL [Concomitant]
  6. LORAZEPAM [Concomitant]
  7. PRAVASTATIN [Concomitant]
  8. ANAPRIL [Concomitant]
  9. FINASTERIDE [Concomitant]

REACTIONS (3)
  - NO ADVERSE EVENT [None]
  - PRURITUS [None]
  - BURNING SENSATION [None]
